FAERS Safety Report 14777140 (Version 1)
Quarter: 2018Q2

REPORT INFORMATION
  Report Type: Report from Study
  Country: VE (occurrence: VE)
  Receive Date: 20180419
  Receipt Date: 20180419
  Transmission Date: 20180711
  Serious: Yes (Other)
  Sender: FDA-Public Use
  Company Number: VE-ROCHE-624888

PATIENT

DRUGS (1)
  1. BEVACIZUMAB. [Suspect]
     Active Substance: BEVACIZUMAB
     Indication: DIABETIC RETINOPATHY
     Route: 050

REACTIONS (4)
  - Optic ischaemic neuropathy [Unknown]
  - Off label use [Unknown]
  - Intentional product use issue [Unknown]
  - Tractional retinal detachment [Unknown]
